FAERS Safety Report 17088655 (Version 8)
Quarter: 2021Q3

REPORT INFORMATION
  Report Type: Report from Study
  Country: GB (occurrence: GB)
  Receive Date: 20191128
  Receipt Date: 20210909
  Transmission Date: 20211014
  Serious: Yes (Hospitalization, Disabling, Other)
  Sender: FDA-Public Use
  Company Number: GB-ASPEN-GLO2019GB012413

PATIENT

DRUGS (36)
  1. RANITIDINE. [Suspect]
     Active Substance: RANITIDINE
     Indication: GASTROOESOPHAGEAL REFLUX DISEASE
     Dosage: 50 MG, 1 DOSE 12 HOURS
     Route: 048
     Dates: start: 20191018
  2. DEXAMETHASONE. [Suspect]
     Active Substance: DEXAMETHASONE
     Dosage: UNK
     Route: 048
  3. AFINITOR [Suspect]
     Active Substance: EVEROLIMUS
     Dosage: 5 MG MONDAY/WEDNESDAY/FRIDAY AND 2.5 MG
     Route: 048
     Dates: start: 20210213
  4. VANDETANIB. [Suspect]
     Active Substance: VANDETANIB
     Dosage: 65 MG PER M2, QD
     Route: 048
     Dates: start: 20200316, end: 20200420
  5. DEXAMETHASONE. [Suspect]
     Active Substance: DEXAMETHASONE
     Dosage: UNK
     Route: 048
     Dates: start: 20191111, end: 20200221
  6. AFINITOR [Suspect]
     Active Substance: EVEROLIMUS
     Dosage: 5 MG MONDAY/WEDNESDAY/FRIDAY AND 2.5 MG TUESDAY/THURSDAY/SATURDAY/SUNDAY
     Route: 048
     Dates: start: 20200207
  7. AFINITOR [Suspect]
     Active Substance: EVEROLIMUS
     Dosage: UNK (5 MG MONDAY TO SATURDAY AND 2.5 MG SUNDAY)
     Route: 048
     Dates: start: 20190717, end: 20200207
  8. LOPERAMIDE [Suspect]
     Active Substance: LOPERAMIDE
     Indication: DIARRHOEA
     Dosage: 2 MG ONE CAPSULE UP TO 4 TIMES A DAY
     Route: 065
  9. COTRIMOXAZOLE [Concomitant]
     Active Substance: SULFAMETHOXAZOLE\TRIMETHOPRIM
     Indication: PRODUCT USED FOR UNKNOWN INDICATION
     Dosage: 360 MG
     Route: 065
  10. DEXAMETHASONE. [Concomitant]
     Active Substance: DEXAMETHASONE
     Indication: PRODUCT USED FOR UNKNOWN INDICATION
     Dosage: 4 MG, 2X/DAY WEANED TO 0.5MG SECOND DAILY
     Route: 065
     Dates: start: 20191101, end: 20200221
  11. AFINITOR [Suspect]
     Active Substance: EVEROLIMUS
     Indication: BRAIN STEM GLIOMA
     Dosage: 5 MG ON MONDAY,WEDNESDAY AND FRIDAY
     Route: 048
     Dates: start: 20190717, end: 20191014
  12. LOPERAMIDE [Suspect]
     Active Substance: LOPERAMIDE
     Indication: PROPHYLAXIS
  13. VANDETANIB. [Suspect]
     Active Substance: VANDETANIB
     Dosage: 100 MG, QOD
     Route: 048
     Dates: start: 20200212, end: 20200302
  14. VANDETANIB. [Suspect]
     Active Substance: VANDETANIB
     Dosage: 100 MG, QOD
     Route: 048
     Dates: start: 20200316, end: 20200420
  15. RANITIDINE. [Suspect]
     Active Substance: RANITIDINE
     Dosage: UNK, BID
     Route: 048
  16. PARACETAMOL [Suspect]
     Active Substance: ACETAMINOPHEN
     Indication: PRODUCT USED FOR UNKNOWN INDICATION
     Dosage: 1 DF, DAILY PRN
     Route: 048
  17. DEXAMETHASONE. [Suspect]
     Active Substance: DEXAMETHASONE
     Dosage: 9.2 MG, QD
     Route: 048
     Dates: start: 20200207, end: 20200221
  18. AFINITOR [Suspect]
     Active Substance: EVEROLIMUS
     Dosage: 2.5 MG ON TUESDAY,THURSDAY,SATURDAY AND SUNDAY
     Route: 048
     Dates: start: 20190717, end: 20191014
  19. AFINITOR [Suspect]
     Active Substance: EVEROLIMUS
     Dosage: 2.5 MG ON TUESDAY,THURSDAY,SATURDAY AND SUNDAY
     Route: 048
     Dates: start: 20210207
  20. AFINITOR [Suspect]
     Active Substance: EVEROLIMUS
     Dosage: 5 MG ON MONDAY, WEDNESDAY AND FRIDAY
     Route: 048
     Dates: start: 20191001
  21. AFINITOR [Suspect]
     Active Substance: EVEROLIMUS
     Dosage: 2.5 MGON TUESDAY, THURSDAY, SATURDAY AND SUNDAY
     Route: 048
     Dates: start: 20191001
  22. VANDETANIB. [Suspect]
     Active Substance: VANDETANIB
     Dosage: 54 MG/M2
     Route: 048
     Dates: start: 20200212, end: 20200302
  23. COTRIMOXAZOLE [Concomitant]
     Active Substance: SULFAMETHOXAZOLE\TRIMETHOPRIM
     Dosage: 360 MG, BID (7.5 ML) ON SATURDAYS AND SUNDAYS
     Route: 048
  24. DEXAMETHASONE. [Suspect]
     Active Substance: DEXAMETHASONE
     Indication: PRODUCT USED FOR UNKNOWN INDICATION
     Dosage: 1.6 MG, QD
     Route: 048
     Dates: start: 20200215, end: 20200221
  25. DEXAMETHASONE. [Suspect]
     Active Substance: DEXAMETHASONE
     Dosage: 3.5 MG, QD
     Route: 048
     Dates: start: 20200212
  26. VANDETANIB. [Suspect]
     Active Substance: VANDETANIB
     Dosage: 100 MG, QOD,(65MG PER M2)
     Route: 048
     Dates: start: 20191018, end: 20200207
  27. COTRIMOXAZOLE [Concomitant]
     Active Substance: SULFAMETHOXAZOLE\TRIMETHOPRIM
     Dosage: UNK
     Route: 065
  28. AFINITOR [Suspect]
     Active Substance: EVEROLIMUS
     Dosage: 5MG MONDAY, WEDNESDAY, FRIDAY
     Route: 048
     Dates: start: 20200212
  29. AFINITOR [Suspect]
     Active Substance: EVEROLIMUS
     Dosage: 2.5 MG TUESDAY, THURSDAY, SATURDAY, SUNDAY
     Route: 048
     Dates: start: 20200212
  30. VANDETANIB. [Suspect]
     Active Substance: VANDETANIB
     Indication: BRAIN STEM GLIOMA
     Dosage: 100 MG, QOD,(65MG PER M2 QD)
     Route: 048
     Dates: start: 20191009, end: 20191014
  31. COTRIMOXAZOLE [Concomitant]
     Active Substance: SULFAMETHOXAZOLE\TRIMETHOPRIM
     Dosage: 360 MG 720 MG, 1X/DAY (360 MG BD ON SAT/SUN ONLY)
     Route: 065
  32. DEXAMETHASONE. [Suspect]
     Active Substance: DEXAMETHASONE
     Dosage: 3.5 MG, 1 DOSE 12 HOURS
     Route: 048
     Dates: start: 20210210
  33. DEXAMETHASONE. [Suspect]
     Active Substance: DEXAMETHASONE
     Dosage: UNK (VARIABLE 4MG BD WEANED TO 0.5MG SECOND DAILY)
     Route: 065
     Dates: start: 20191101, end: 20200221
  34. AFINITOR [Suspect]
     Active Substance: EVEROLIMUS
     Dosage: 5 MG MONDAY/WEDNESDAY/FRIDAY AND 2.5 MG
     Route: 048
     Dates: start: 20190718, end: 20200207
  35. VANDETANIB. [Suspect]
     Active Substance: VANDETANIB
     Dosage: 65 MG/M2, QD
     Route: 048
     Dates: start: 20191009, end: 20191014
  36. LANSOPRAZOLE. [Suspect]
     Active Substance: LANSOPRAZOLE
     Indication: PRODUCT USED FOR UNKNOWN INDICATION
     Dosage: UNK
     Route: 065

REACTIONS (29)
  - Product use in unapproved indication [Unknown]
  - Hypophosphataemia [Recovered/Resolved]
  - Ocular hyperaemia [Recovered/Resolved]
  - Stomatitis [Recovered/Resolved]
  - White blood cell count decreased [Not Recovered/Not Resolved]
  - Blood creatinine increased [Recovered/Resolved]
  - Facial paralysis [Recovered/Resolved]
  - Blood cholesterol increased [Recovered/Resolved]
  - Flatulence [Recovered/Resolved]
  - Neutrophil count decreased [Recovered/Resolved]
  - Off label use [Unknown]
  - Hemiparesis [Recovered/Resolved]
  - Malignant neoplasm progression [Unknown]
  - Brain stem glioma [Unknown]
  - Blood cholesterol increased [Not Recovered/Not Resolved]
  - Alanine aminotransferase increased [Recovered/Resolved]
  - Medication error [Unknown]
  - Ataxia [Recovered/Resolved]
  - Myoclonus [Recovered/Resolved]
  - Reflux gastritis [Recovered/Resolved]
  - Hypertension [Recovered/Resolved]
  - Facial paralysis [Recovered/Resolved]
  - Electrocardiogram QT prolonged [Recovered/Resolved]
  - Abdominal distension [Recovered/Resolved]
  - Hypophagia [Not Recovered/Not Resolved]
  - Lymphocyte count decreased [Not Recovered/Not Resolved]
  - Blood triglycerides increased [Unknown]
  - Gastrooesophageal reflux disease [Recovered/Resolved]
  - Facial paralysis [Recovered/Resolved]

NARRATIVE: CASE EVENT DATE: 20190111
